FAERS Safety Report 5383174-8 (Version None)
Quarter: 2007Q3

REPORT INFORMATION
  Report Type: 
  Country: None (occurrence: None)
  Receive Date: 20070710
  Receipt Date: 20070627
  Transmission Date: 20080115
  Serious: Yes (Hospitalization)
  Sender: FDA-Public Use
  Company Number: US-ELI_LILLY_AND_COMPANY-US200706000642

PATIENT
  Age: 78 Year
  Sex: Female

DRUGS (11)
  1. FORTEO [Suspect]
     Indication: OSTEOPOROSIS
     Dosage: 20 UG, UNK
     Dates: start: 20070208
  2. SYNTHROID [Concomitant]
  3. FOSAMAX [Concomitant]
  4. AMITRIPTYLINE HCL [Concomitant]
  5. MULTI-VITAMIN [Concomitant]
  6. VERAPAMIL [Concomitant]
  7. ALTACE [Concomitant]
  8. NIACIN [Concomitant]
  9. LODINE [Concomitant]
  10. DARVOCET [Concomitant]
  11. FLEXERIL [Concomitant]

REACTIONS (5)
  - ACCIDENTAL OVERDOSE [None]
  - MEDICATION ERROR [None]
  - NERVOUSNESS [None]
  - PERIRECTAL ABSCESS [None]
  - URINARY TRACT INFECTION [None]
